FAERS Safety Report 8840148 (Version 1)
Quarter: 2012Q4

REPORT INFORMATION
  Report Type: 
  Country: US (occurrence: US)
  Receive Date: 20121015
  Receipt Date: 20121015
  Transmission Date: 20130627
  Serious: No
  Sender: FDA-Public Use
  Company Number: US-PFIZER INC-2012255499

PATIENT
  Age: 53 Year
  Sex: Female
  Weight: 54.42 kg

DRUGS (3)
  1. CHANTIX [Suspect]
     Indication: SMOKING CESSATION THERAPY
     Dosage: UNK
     Route: 048
  2. CHANTIX [Suspect]
     Dosage: UNK
     Route: 048
     Dates: start: 2012, end: 20121011
  3. LISINOPRIL [Concomitant]
     Indication: HYPERTENSION
     Dosage: ^20/10^ daily

REACTIONS (2)
  - Depression [Not Recovered/Not Resolved]
  - Crying [Unknown]
